FAERS Safety Report 8519040-6 (Version None)
Quarter: 2012Q3

REPORT INFORMATION
  Report Type: 
  Country: None (occurrence: None)
  Receive Date: 20120718
  Receipt Date: 20120716
  Transmission Date: 20120928
  Serious: Yes (Death, Other)
  Sender: FDA-Public Use
  Company Number: PHHY2012PK060887

PATIENT
  Age: 73 Year
  Sex: Male
  Weight: 75 kg

DRUGS (1)
  1. EXELON [Suspect]
     Dosage: 10 CM
     Route: 062
     Dates: start: 20110427

REACTIONS (3)
  - DIABETES MELLITUS [None]
  - LOWER RESPIRATORY TRACT INFECTION [None]
  - DEATH [None]
